FAERS Safety Report 4422123-3 (Version None)
Quarter: 2004Q3

REPORT INFORMATION
  Report Type: 
  Country: None (occurrence: None)
  Receive Date: 20040806
  Receipt Date: 20040730
  Transmission Date: 20050211
  Serious: Yes (Hospitalization)
  Sender: FDA-Public Use
  Company Number: 2001-11-0390

PATIENT
  Age: 51 Year
  Sex: Female
  Weight: 69.4003 kg

DRUGS (9)
  1. PEG-INTRON [Suspect]
     Indication: HEPATITIS C
     Dosage: 96 MCG QWK SUBCUTANEOUS
     Route: 058
     Dates: start: 20010612, end: 20011106
  2. RIBAVIRIN [Suspect]
     Indication: HEPATITIS C
     Dosage: 800 MG QD ORAL
     Route: 048
     Dates: start: 20010612, end: 20011106
  3. PROZAC [Concomitant]
  4. MULTI-VITAMINS [Concomitant]
  5. EXCEDRIN (MIGRAINE) [Concomitant]
  6. COZAAR [Concomitant]
  7. HYZAAR [Concomitant]
  8. RESTORIL [Concomitant]
  9. ASPIRIN [Concomitant]

REACTIONS (18)
  - ANGIOTENSIN CONVERTING ENZYME INCREASED [None]
  - ANTERIOR CHAMBER DISORDER [None]
  - ANTINUCLEAR ANTIBODY POSITIVE [None]
  - CEREBRAL VENTRICLE DILATATION [None]
  - HILAR LYMPHADENOPATHY [None]
  - IRIS DISORDER [None]
  - LYMPHADENOPATHY MEDIASTINAL [None]
  - NODULE [None]
  - OPTIC DISC HAEMORRHAGE [None]
  - PAPILLOEDEMA [None]
  - RED BLOOD CELL SEDIMENTATION RATE INCREASED [None]
  - RETINAL DETACHMENT [None]
  - RETINAL HAEMORRHAGE [None]
  - RHEUMATOID FACTOR POSITIVE [None]
  - SARCOIDOSIS [None]
  - UVEITIS [None]
  - VISION BLURRED [None]
  - VISUAL ACUITY REDUCED [None]
